FAERS Safety Report 5471138-5 (Version None)
Quarter: 2007Q3

REPORT INFORMATION
  Report Type: 
  Country: None (occurrence: None)
  Receive Date: 20070928
  Receipt Date: 20070917
  Transmission Date: 20080115
  Serious: Yes (Other)
  Sender: FDA-Public Use
  Company Number: MY-ROCHE-518724

PATIENT
  Age: 24 Year
  Sex: Male

DRUGS (3)
  1. ROCEPHIN [Suspect]
     Indication: BRAIN ABSCESS
     Dosage: FORM: VIAL, DAILY DOSAGE
     Route: 042
  2. CHLORHEXIDINE GLUCONATE [Concomitant]
  3. PARACETAMOL [Concomitant]

REACTIONS (3)
  - LEUKOPENIA [None]
  - NEUTROPENIC SEPSIS [None]
  - PYREXIA [None]
